FAERS Safety Report 13555051 (Version 1)
Quarter: 2017Q2

REPORT INFORMATION
  Report Type: Spontaneous
  Country: CN (occurrence: CN)
  Receive Date: 20170517
  Receipt Date: 20170517
  Transmission Date: 20170830
  Serious: Yes (Other)
  Sender: FDA-Public Use
  Company Number: CN-BAXTER-2017BAX020590

PATIENT
  Age: 34 Year
  Sex: Female
  Weight: 54 kg

DRUGS (9)
  1. PIRARUBICIN HYDROCHLORIDE [Suspect]
     Active Substance: PIRARUBICIN HYDROCHLORIDE
     Dosage: 2ND CYCLE
     Route: 041
     Dates: start: 20160927, end: 20160927
  2. FLUOROURACIL. [Suspect]
     Active Substance: FLUOROURACIL
     Indication: CHEMOTHERAPY
     Dosage: 1 ST CYCLE
     Route: 041
  3. FLUOROURACIL. [Suspect]
     Active Substance: FLUOROURACIL
     Dosage: 2ND CYCLE
     Route: 041
     Dates: start: 20160927, end: 20160927
  4. 0.9% SODIUM CHLORIDE INJECTION [Suspect]
     Active Substance: SODIUM CHLORIDE
     Indication: MEDICATION DILUTION
     Dosage: SOLVENT FOR FLUOROURACIL
     Route: 041
     Dates: start: 20160927, end: 20160927
  5. ENDOXAN [Suspect]
     Active Substance: CYCLOPHOSPHAMIDE
     Indication: CHEMOTHERAPY
     Dosage: 1ST CYCLE
     Route: 041
  6. PIRARUBICIN HYDROCHLORIDE [Suspect]
     Active Substance: PIRARUBICIN HYDROCHLORIDE
     Indication: NEOPLASM
     Dosage: 1ST CYCLE
     Route: 041
  7. GLUCOSE [Suspect]
     Active Substance: DEXTROSE
     Indication: MEDICATION DILUTION
     Dosage: SOLVENT FOR PIRARUBICIN HCI
     Route: 041
     Dates: start: 20160927, end: 20160927
  8. ENDOXAN [Suspect]
     Active Substance: CYCLOPHOSPHAMIDE
     Dosage: 2ND CYCLE
     Route: 041
     Dates: start: 20160927, end: 20160927
  9. SODIUM CHLORIDE. [Suspect]
     Active Substance: SODIUM CHLORIDE
     Indication: MEDICATION DILUTION
     Dosage: SOLVENT FOR ENDOXAN
     Route: 041
     Dates: start: 20160927, end: 20160927

REACTIONS (3)
  - Leukopenia [Recovering/Resolving]
  - Agranulocytosis [Recovering/Resolving]
  - Bone marrow failure [Unknown]

NARRATIVE: CASE EVENT DATE: 20161007
